FAERS Safety Report 14417319 (Version 1)
Quarter: 2018Q1

REPORT INFORMATION
  Report Type: Spontaneous
  Country: US (occurrence: US)
  Receive Date: 20180119
  Receipt Date: 20180119
  Transmission Date: 20180509
  Serious: No
  Sender: FDA-Public Use
  Company Number: None

PATIENT
  Age: 44 Year
  Sex: Female

DRUGS (1)
  1. ADCIRCA [Suspect]
     Active Substance: TADALAFIL
     Indication: PULMONARY HYPERTENSION
     Route: 048
     Dates: start: 20171127, end: 20171227

REACTIONS (6)
  - International normalised ratio fluctuation [None]
  - Nausea [None]
  - Heart rate increased [None]
  - Back pain [None]
  - Nervousness [None]
  - Constipation [None]

NARRATIVE: CASE EVENT DATE: 20171229
